FAERS Safety Report 8429832-X (Version None)
Quarter: 2012Q2

REPORT INFORMATION
  Report Type: 
  Country: None (occurrence: None)
  Receive Date: 20120612
  Receipt Date: 20120529
  Transmission Date: 20120825
  Serious: Yes (Hospitalization)
  Sender: FDA-Public Use
  Company Number: US-WATSON-2012-09543

PATIENT
  Age: 41 Year
  Sex: Male

DRUGS (1)
  1. BACLOFEN [Suspect]
     Indication: SUICIDE ATTEMPT
     Dosage: UNK
     Route: 048

REACTIONS (11)
  - HYPOTHERMIA [None]
  - HYPOTENSION [None]
  - DELIRIUM [None]
  - MUSCLE CONTRACTIONS INVOLUNTARY [None]
  - AUTONOMIC NERVOUS SYSTEM IMBALANCE [None]
  - COMA [None]
  - INTENTIONAL OVERDOSE [None]
  - WITHDRAWAL SYNDROME [None]
  - VOMITING [None]
  - HYPERREFLEXIA [None]
  - DEPRESSED LEVEL OF CONSCIOUSNESS [None]
